FAERS Safety Report 8798172 (Version 1)
Quarter: 2012Q4

REPORT INFORMATION
  Report Type: Report from Study
  Country: US (occurrence: US)
  Receive Date: 20120920
  Receipt Date: 20120920
  Transmission Date: 20130627
  Serious: Yes (Other)
  Sender: FDA-Public Use
  Company Number: US-ABBOTT-12P-163-0980453-00

PATIENT
  Sex: Female

DRUGS (5)
  1. NIASPAN (COATED) [Suspect]
     Indication: BLOOD CHOLESTEROL
     Dosage: At bedtime
     Dates: start: 2005
  2. FISH OIL [Concomitant]
     Indication: PRODUCT USED FOR UNKNOWN INDICATION
  3. VITAMINS [Concomitant]
     Indication: PRODUCT USED FOR UNKNOWN INDICATION
  4. ASA [Concomitant]
     Indication: PRODUCT USED FOR UNKNOWN INDICATION
  5. OTHER UNSPECIFIED MEDICATIONS [Concomitant]
     Indication: PRODUCT USED FOR UNKNOWN INDICATION

REACTIONS (5)
  - Ovarian cancer [Not Recovered/Not Resolved]
  - Malignant melanoma [Unknown]
  - Neoplasm malignant [Unknown]
  - Pollakiuria [Not Recovered/Not Resolved]
  - Abdominal discomfort [Not Recovered/Not Resolved]
